FAERS Safety Report 23990220 (Version 3)
Quarter: 2024Q3

REPORT INFORMATION
  Report Type: Spontaneous
  Country: US (occurrence: US)
  Receive Date: 20240619
  Receipt Date: 20240925
  Transmission Date: 20241017
  Serious: Yes (Hospitalization)
  Sender: CALLIDITAS THERAPEUTICS
  Company Number: US-Calliditas-2024CAL01089

PATIENT
  Age: 49 Year
  Sex: Female
  Weight: 47.5 kg

DRUGS (1)
  1. TARPEYO [Suspect]
     Active Substance: BUDESONIDE
     Indication: IgA nephropathy
     Route: 048
     Dates: start: 20240518

REACTIONS (16)
  - Blood pressure increased [Unknown]
  - Swelling face [Unknown]
  - Peripheral swelling [Unknown]
  - Joint swelling [Unknown]
  - Dry skin [Unknown]
  - Muscle spasms [Unknown]
  - Brain fog [Unknown]
  - Blood potassium increased [Unknown]
  - Glomerular filtration rate decreased [Unknown]
  - Blood creatinine increased [Unknown]
  - Fatigue [Unknown]
  - Increased tendency to bruise [Unknown]
  - Abdominal distension [Unknown]
  - Anxiety [Unknown]
  - Irritability [Unknown]
  - Mood altered [Unknown]
